FAERS Safety Report 9132799 (Version 1)
Quarter: 2013Q1

REPORT INFORMATION
  Report Type: Spontaneous
  Country: GB (occurrence: GB)
  Receive Date: 20130301
  Receipt Date: 20130301
  Transmission Date: 20140127
  Serious: Yes (Disabling)
  Sender: FDA-Public Use
  Company Number: GB-ROCHE-1196721

PATIENT
  Age: 54 Year
  Sex: Female
  Weight: 81 kg

DRUGS (1)
  1. TOCILIZUMAB [Suspect]
     Indication: ARTHROPATHY
     Route: 042
     Dates: start: 20121114, end: 20121212

REACTIONS (2)
  - Myalgia [Recovered/Resolved]
  - Oedema [Recovered/Resolved]
